FAERS Safety Report 11796208 (Version 2)
Quarter: 2016Q1

REPORT INFORMATION
  Report Type: Spontaneous
  Country: FR (occurrence: FR)
  Receive Date: 20151203
  Receipt Date: 20160225
  Transmission Date: 20160525
  Serious: Yes (Other)
  Sender: FDA-Public Use
  Company Number: FR-ROCHE-1671717

PATIENT
  Age: 71 Year
  Sex: Female
  Weight: 47 kg

DRUGS (1)
  1. LUCENTIS [Suspect]
     Active Substance: RANIBIZUMAB
     Indication: AGE-RELATED MACULAR DEGENERATION
     Dosage: 0.5 MG IN RIGHT EYE
     Route: 050
     Dates: start: 20151026, end: 20151026

REACTIONS (7)
  - Pulmonary hypertension [Recovered/Resolved]
  - Dyspnoea [Recovered/Resolved]
  - Palpitations [Recovered/Resolved]
  - Embolism [Unknown]
  - Tachycardia [Recovered/Resolved]
  - Chest discomfort [Recovered/Resolved]
  - Supraventricular extrasystoles [Recovered/Resolved]

NARRATIVE: CASE EVENT DATE: 20151027
